FAERS Safety Report 9836645 (Version 1)
Quarter: 2014Q1

REPORT INFORMATION
  Report Type: Spontaneous
  Country: CA (occurrence: CA)
  Receive Date: 20140123
  Receipt Date: 20140123
  Transmission Date: 20141002
  Serious: Yes (Other)
  Sender: FDA-Public Use
  Company Number: CA-ASTRAZENECA-2014SE03289

PATIENT
  Age: 47 Year
  Sex: Female

DRUGS (2)
  1. ARIMIDEX [Suspect]
     Route: 048
  2. LETROZOLE [Suspect]
     Route: 048

REACTIONS (3)
  - Breast cancer [Unknown]
  - Drug intolerance [Unknown]
  - Malignant neoplasm progression [Unknown]
